FAERS Safety Report 8942197 (Version 1)
Quarter: 2012Q4

REPORT INFORMATION
  Report Type: Spontaneous
  Country: US (occurrence: None)
  Receive Date: 20121129
  Receipt Date: 20121129
  Transmission Date: 20130627
  Serious: Yes (Other)
  Sender: FDA-Public Use
  Company Number: None

PATIENT
  Age: 3 Year
  Sex: Male
  Weight: 92.99 kg

DRUGS (1)
  1. SUBOXONE FILM [Suspect]
     Indication: OPIUM ADDICTION
     Route: 048
     Dates: start: 20120901, end: 20121118

REACTIONS (2)
  - Constipation [None]
  - Candidiasis [None]
